FAERS Safety Report 9527554 (Version 1)
Quarter: 2013Q1

REPORT INFORMATION
  Report Type: Spontaneous
  Country: US (occurrence: None)
  Receive Date: 20130314
  Receipt Date: 20130314
  Transmission Date: 20140127
  Serious: No
  Sender: FDA-Public Use
  Company Number: 1211USA003439

PATIENT
  Age: 57 Year
  Sex: Male

DRUGS (3)
  1. VICTRELIS (BOCEPREVIR) CAPSULE [Suspect]
     Indication: HEPATITIS C
     Dosage: UNK, ORAL
     Route: 048
     Dates: start: 20121110
  2. RIBAVIRIN (RIBAVIRIN) CAPSULE [Suspect]
     Indication: HEPATITIS C
     Dosage: UNK, ORAL
     Route: 048
     Dates: start: 20121110
  3. PEGASYS (PEGINTERFERON ALFA-2A) [Suspect]
     Dosage: UNK?
     Dates: start: 20121110

REACTIONS (5)
  - Productive cough [None]
  - Influenza like illness [None]
  - Fatigue [None]
  - Pollakiuria [None]
  - Fatigue [None]
